FAERS Safety Report 4986535-1 (Version None)
Quarter: 2006Q2

REPORT INFORMATION
  Report Type: 
  Country: None (occurrence: None)
  Receive Date: 20060424
  Receipt Date: 20060417
  Transmission Date: 20061013
  Serious: Yes (Death, Hospitalization)
  Sender: FDA-Public Use
  Company Number: 200610847BWH

PATIENT
  Age: 64 Year
  Sex: Female

DRUGS (10)
  1. NEXAVAR [Suspect]
     Indication: RENAL CELL CARCINOMA STAGE UNSPECIFIED
     Dosage: SEE IMAGE
     Route: 048
     Dates: start: 20060201
  2. NEXAVAR [Suspect]
     Indication: RENAL CELL CARCINOMA STAGE UNSPECIFIED
     Dosage: SEE IMAGE
     Route: 048
     Dates: start: 20060201
  3. FLEXERIL [Concomitant]
  4. PERCOCET [Concomitant]
  5. NEURONTIN [Concomitant]
  6. VITAMINS NOS [Concomitant]
  7. COLACE [Concomitant]
  8. LYSINE [Concomitant]
  9. REJUVEX [Concomitant]
  10. COQ10 [Concomitant]

REACTIONS (4)
  - GENERAL PHYSICAL HEALTH DETERIORATION [None]
  - INTESTINAL OBSTRUCTION [None]
  - METASTASES TO STOMACH [None]
  - RENAL CELL CARCINOMA STAGE UNSPECIFIED [None]
